FAERS Safety Report 6854424-3 (Version None)
Quarter: 2010Q3

REPORT INFORMATION
  Report Type: 
  Country: None (occurrence: None)
  Receive Date: 20100717
  Receipt Date: 20080102
  Transmission Date: 20110219
  Serious: No
  Sender: FDA-Public Use
  Company Number: US-PFIZER INC-2008002251

PATIENT
  Sex: Male
  Weight: 63.6 kg

DRUGS (2)
  1. CHANTIX [Suspect]
     Indication: SMOKING CESSATION THERAPY
     Route: 048
     Dates: start: 20071219
  2. CHOLESTEROL [Concomitant]
     Dates: start: 20070101

REACTIONS (3)
  - ABDOMINAL DISTENSION [None]
  - ABDOMINAL PAIN [None]
  - CONSTIPATION [None]
